FAERS Safety Report 20311624 (Version 1)
Quarter: 2022Q1

REPORT INFORMATION
  Report Type: Spontaneous
  Country: CN (occurrence: CN)
  Receive Date: 20220108
  Receipt Date: 20220108
  Transmission Date: 20220423
  Serious: Yes (Other)
  Sender: FDA-Public Use
  Company Number: CN-SA-SAC20220103000290

PATIENT
  Age: 80 Year
  Sex: Male
  Weight: 82 kg

DRUGS (1)
  1. ZOLPIDEM TARTRATE [Suspect]
     Active Substance: ZOLPIDEM TARTRATE
     Indication: Poor quality sleep
     Dosage: 10 MG, QD
     Route: 048
     Dates: start: 20211221, end: 20211221

REACTIONS (1)
  - Delirium [Unknown]

NARRATIVE: CASE EVENT DATE: 20211222
